FAERS Safety Report 14134116 (Version 1)
Quarter: 2017Q4

REPORT INFORMATION
  Report Type: Spontaneous
  Country: FR (occurrence: FR)
  Receive Date: 20171026
  Receipt Date: 20171026
  Transmission Date: 20180321
  Serious: Yes (Other)
  Sender: FDA-Public Use
  Company Number: FR-SA-2017SA204378

PATIENT
  Age: 62 Year
  Sex: Female

DRUGS (3)
  1. TIVICAY [Concomitant]
     Active Substance: DOLUTEGRAVIR SODIUM
     Indication: HIV INFECTION
     Route: 065
     Dates: start: 2017
  2. TRUVADA [Concomitant]
     Active Substance: EMTRICITABINE\TENOFOVIR DISOPROXIL FUMARATE
     Indication: HIV INFECTION
     Route: 065
     Dates: start: 2017
  3. PRIMAQUINE SPECIA [Suspect]
     Active Substance: PRIMAQUINE PHOSPHATE
     Indication: MALARIA
     Route: 048
     Dates: start: 20170916, end: 20170920

REACTIONS (3)
  - Abdominal pain upper [Recovering/Resolving]
  - Ultrasound scan abnormal [None]
  - Nausea [Recovering/Resolving]

NARRATIVE: CASE EVENT DATE: 20170919
